FAERS Safety Report 8050526-7 (Version None)
Quarter: 2012Q1

REPORT INFORMATION
  Report Type: 
  Country: None (occurrence: None)
  Receive Date: 20120103
  Receipt Date: 20111227
  Transmission Date: 20120608
  Serious: Yes (Life-Threatening, Hospitalization)
  Sender: FDA-Public Use
  Company Number: 2011030647

PATIENT
  Sex: Male
  Weight: 126 kg

DRUGS (15)
  1. PRIVIGEN [Suspect]
  2. LISINOPRIL [Concomitant]
  3. LOVENOX [Concomitant]
  4. AMLODIPINE [Concomitant]
  5. PYRIDOSTIGMINE (PYRIDOSTIGMINE) [Concomitant]
  6. DOCUSATE (DOCUSATE) [Concomitant]
  7. PREDNISONE TAB [Concomitant]
  8. PRIVIGEN [Suspect]
  9. HYDROCHLOROTHIAZIDE [Concomitant]
  10. PRIVIGEN [Suspect]
     Indication: MYASTHENIA GRAVIS CRISIS
     Dosage: SEE IMAGE
     Route: 042
     Dates: start: 20111223, end: 20111226
  11. PRIVIGEN [Suspect]
     Indication: MYASTHENIA GRAVIS CRISIS
     Dosage: SEE IMAGE
     Route: 042
     Dates: start: 20111223, end: 20111226
  12. PRIVIGEN [Suspect]
     Indication: MYASTHENIA GRAVIS CRISIS
     Dosage: SEE IMAGE
     Route: 042
     Dates: start: 20111223, end: 20111226
  13. FAMOTIDINE [Concomitant]
  14. ACETAMINOPHEN [Concomitant]
  15. HYDRALAZINE HCL [Concomitant]

REACTIONS (3)
  - BLOOD PRESSURE INCREASED [None]
  - INFUSION RELATED REACTION [None]
  - OFF LABEL USE [None]
